FAERS Safety Report 12045421 (Version 1)
Quarter: 2016Q1

REPORT INFORMATION
  Report Type: Spontaneous
  Country: FR (occurrence: FR)
  Receive Date: 20160208
  Receipt Date: 20160208
  Transmission Date: 20160526
  Serious: Yes (Other)
  Sender: FDA-Public Use
  Company Number: FR-TEVA-631741ISR

PATIENT
  Age: 53 Year
  Sex: Female

DRUGS (1)
  1. AMOXICILLINE TEVA 500 MG [Suspect]
     Active Substance: AMOXICILLIN
     Route: 048
     Dates: start: 20160128, end: 20160128

REACTIONS (2)
  - Angioedema [Unknown]
  - Swelling face [Unknown]

NARRATIVE: CASE EVENT DATE: 201601
